FAERS Safety Report 24623339 (Version 1)
Quarter: 2024Q4

REPORT INFORMATION
  Report Type: Spontaneous
  Country: AU (occurrence: AU)
  Receive Date: 20241115
  Receipt Date: 20241115
  Transmission Date: 20250115
  Serious: Yes (Other)
  Sender: MACLEODS
  Company Number: AU-MACLEODS PHARMA-MAC2024050220

PATIENT

DRUGS (2)
  1. SEVELAMER [Suspect]
     Active Substance: SEVELAMER
     Indication: Nephropathy
     Route: 065
  2. KAYEXALATE [Suspect]
     Active Substance: SODIUM POLYSTYRENE SULFONATE
     Indication: Nephropathy
     Route: 065

REACTIONS (2)
  - Large intestine polyp [Recovered/Resolved]
  - Diarrhoea [Recovered/Resolved]
